FAERS Safety Report 5253867-1 (Version None)
Quarter: 2007Q1

REPORT INFORMATION
  Report Type: 
  Country: None (occurrence: None)
  Receive Date: 20070227
  Receipt Date: 20070213
  Transmission Date: 20070707
  Serious: Yes (Hospitalization)
  Sender: FDA-Public Use
  Company Number: ENC200700024

PATIENT
  Age: 73 Year

DRUGS (1)
  1. ARGATROBAN [Suspect]
     Indication: HEPARIN-INDUCED THROMBOCYTOPENIA
     Dosage: 0.5 MG/KG/MIN, INTRAVENOUS
     Route: 042
     Dates: start: 20070211, end: 20070213

REACTIONS (3)
  - HAEMODIALYSIS [None]
  - HAEMORRHAGE [None]
  - PLATELET COUNT DECREASED [None]
